FAERS Safety Report 24227306 (Version 5)
Quarter: 2025Q1

REPORT INFORMATION
  Report Type: Spontaneous
  Country: US (occurrence: US)
  Receive Date: 20240820
  Receipt Date: 20250130
  Transmission Date: 20250409
  Serious: No
  Sender: NOVARTIS
  Company Number: US-002147023-NVSC2024US166270

PATIENT
  Sex: Female

DRUGS (2)
  1. COSENTYX [Suspect]
     Active Substance: SECUKINUMAB
     Indication: Product used for unknown indication
     Route: 065
  2. COSENTYX [Suspect]
     Active Substance: SECUKINUMAB
     Route: 065

REACTIONS (10)
  - Drug dose omission by device [Unknown]
  - Needle issue [Unknown]
  - Device defective [Unknown]
  - Syringe issue [Unknown]
  - Device difficult to use [Unknown]
  - Psoriasis [Unknown]
  - Inflammation [Unknown]
  - Malaise [Unknown]
  - Anger [Unknown]
  - Musculoskeletal stiffness [Unknown]
